FAERS Safety Report 6305337-7 (Version None)
Quarter: 2009Q3

REPORT INFORMATION
  Report Type: 
  Country: None (occurrence: None)
  Receive Date: 20090811
  Receipt Date: 20090804
  Transmission Date: 20100115
  Serious: Yes (Hospitalization)
  Sender: FDA-Public Use
  Company Number: US-ORACLE-2009S1000300

PATIENT
  Age: 78 Year
  Sex: Female

DRUGS (1)
  1. CUBICIN [Suspect]
     Indication: OSTEOMYELITIS

REACTIONS (4)
  - ASTHENIA [None]
  - DYSPNOEA [None]
  - LUNG INFILTRATION [None]
  - LYMPHADENOPATHY [None]
